FAERS Safety Report 6255715-X (Version None)
Quarter: 2009Q3

REPORT INFORMATION
  Report Type: 
  Country: None (occurrence: None)
  Receive Date: 20090701
  Receipt Date: 20090618
  Transmission Date: 20100115
  Serious: Yes (Hospitalization)
  Sender: FDA-Public Use
  Company Number: FRVA20090015

PATIENT
  Age: 2 Year
  Sex: Male

DRUGS (1)
  1. FROVA [Suspect]
     Dosage: 2.5 MG, ORAL
     Route: 048

REACTIONS (5)
  - ACCIDENTAL DRUG INTAKE BY CHILD [None]
  - DIZZINESS [None]
  - FATIGUE [None]
  - HYPOKINESIA [None]
  - OVERDOSE [None]
